FAERS Safety Report 4486346-X (Version None)
Quarter: 2004Q4

REPORT INFORMATION
  Report Type: 
  Country: None (occurrence: None)
  Receive Date: 20041022
  Receipt Date: 20041007
  Transmission Date: 20050328
  Serious: Yes (Death)
  Sender: FDA-Public Use
  Company Number: 2004S1003021

PATIENT
  Age: 42 Year
  Sex: Female

DRUGS (1)
  1. CLOZAPINE [Suspect]
     Dosage: 300MG HS ORAL
     Route: 048
     Dates: start: 20040825

REACTIONS (1)
  - DEATH [None]
